FAERS Safety Report 23150246 (Version 1)
Quarter: 2023Q4

REPORT INFORMATION
  Report Type: Spontaneous
  Country: CN (occurrence: None)
  Receive Date: 20231106
  Receipt Date: 20231106
  Transmission Date: 20240110
  Serious: Yes (Life-Threatening, Hospitalization, Other)
  Sender: FDA-Public Use
  Company Number: 2023A251966

PATIENT
  Age: 62 Year
  Sex: Male
  Weight: 80 kg

DRUGS (2)
  1. DURVALUMAB [Suspect]
     Active Substance: DURVALUMAB
     Indication: Oesophageal squamous cell carcinoma
     Dosage: 500 MG, D1
     Route: 042
  2. CATEQUENTINIB [Concomitant]
     Active Substance: CATEQUENTINIB
     Dosage: 8 MG, D1 D14, FOR 21 DAYS AS A CYCLE

REACTIONS (3)
  - Fulminant type 1 diabetes mellitus [Unknown]
  - Diabetic ketoacidosis [Unknown]
  - Shock [Unknown]
